FAERS Safety Report 23832148 (Version 1)
Quarter: 2024Q2

REPORT INFORMATION
  Report Type: Spontaneous
  Country: NL (occurrence: NL)
  Receive Date: 20240508
  Receipt Date: 20240508
  Transmission Date: 20240716
  Serious: Yes (Hospitalization)
  Sender: FDA-Public Use
  Company Number: None

PATIENT
  Age: 47 Year
  Sex: Female
  Weight: 60 kg

DRUGS (4)
  1. LASMIDITAN SUCCINATE [Suspect]
     Active Substance: LASMIDITAN SUCCINATE
     Indication: Migraine
     Dosage: 100 MG, DAILY (ZONODIG HERHALEN NA 2 UUR. MAX2 PER 24U)
     Route: 065
     Dates: start: 20240306, end: 20240422
  2. CANDESARTAN [Concomitant]
     Active Substance: CANDESARTAN
     Indication: Product used for unknown indication
     Dosage: 8 MG, UNKNOWN
  3. CLOPIDOGREL [Concomitant]
     Active Substance: CLOPIDOGREL BISULFATE
     Indication: Product used for unknown indication
     Dosage: 75 MG, UNKNOWN
  4. SIMVASTATIN [Concomitant]
     Active Substance: SIMVASTATIN
     Indication: Product used for unknown indication
     Dosage: 40 MG, UNKNOWN

REACTIONS (9)
  - Hemiparesis [Recovering/Resolving]
  - Slow speech [Recovering/Resolving]
  - Hyperhidrosis [Recovering/Resolving]
  - Dizziness [Recovering/Resolving]
  - Anxiety [Recovering/Resolving]
  - Panic reaction [Recovering/Resolving]
  - Muscular weakness [Recovering/Resolving]
  - Restlessness [Recovering/Resolving]
  - Nausea [Recovering/Resolving]
